FAERS Safety Report 15999661 (Version 1)
Quarter: 2019Q1

REPORT INFORMATION
  Report Type: Report from Study
  Country: None (occurrence: CA)
  Receive Date: 20190225
  Receipt Date: 20190225
  Transmission Date: 20190418
  Serious: Yes (Other)
  Sender: FDA-Public Use
  Company Number: CA-ABBVIE-19K-028-2675451-00

PATIENT
  Sex: Male

DRUGS (3)
  1. HUMIRA [Suspect]
     Active Substance: ADALIMUMAB
     Route: 058
  2. HUMIRA [Suspect]
     Active Substance: ADALIMUMAB
     Indication: CROHN^S DISEASE
     Route: 058
     Dates: start: 20110609
  3. HUMIRA [Suspect]
     Active Substance: ADALIMUMAB
     Route: 058

REACTIONS (22)
  - Drain placement [Unknown]
  - Drug level changed [Unknown]
  - Intestinal anastomosis [Unknown]
  - Anal abscess [Unknown]
  - Tonsillectomy [Unknown]
  - Antineutrophil cytoplasmic antibody negative [Unknown]
  - Paraesthesia [Unknown]
  - Infrequent bowel movements [Unknown]
  - Limb discomfort [Unknown]
  - Small intestinal obstruction [Unknown]
  - Protein total abnormal [Unknown]
  - Anti-saccharomyces cerevisiae antibody test positive [Unknown]
  - Tinea versicolour [Unknown]
  - Iron deficiency [Unknown]
  - Anal haemorrhage [Unknown]
  - Crohn^s disease [Unknown]
  - Intestinal resection [Unknown]
  - Intestinal fibrosis [Unknown]
  - Abdominal discomfort [Unknown]
  - Ileal stenosis [Unknown]
  - Intestinal stenosis [Unknown]
  - Anastomotic ulcer [Unknown]
